FAERS Safety Report 7759906-8 (Version None)
Quarter: 2011Q3

REPORT INFORMATION
  Report Type: 
  Country: None (occurrence: None)
  Receive Date: 20110919
  Receipt Date: 20110909
  Transmission Date: 20111222
  Serious: Yes (Hospitalization)
  Sender: FDA-Public Use
  Company Number: JP-MERCK-1109USA01212

PATIENT
  Age: 75 Year
  Sex: Female

DRUGS (1)
  1. PRIMAXIN [Suspect]
     Indication: URINARY TRACT INFECTION
     Route: 041

REACTIONS (2)
  - FACIAL SPASM [None]
  - MUSCLE SPASMS [None]
